FAERS Safety Report 6107822-X (Version None)
Quarter: 2009Q1

REPORT INFORMATION
  Report Type: 
  Country: None (occurrence: None)
  Receive Date: 20090309
  Receipt Date: 20090226
  Transmission Date: 20090719
  Serious: Yes (Death)
  Sender: FDA-Public Use
  Company Number: US-JNJFOC-20090205577

PATIENT
  Age: 53 Year
  Sex: Female

DRUGS (8)
  1. TRAMADOL [Suspect]
     Indication: DRUG USE FOR UNKNOWN INDICATION
     Route: 065
  2. XYREM [Suspect]
     Indication: DRUG USE FOR UNKNOWN INDICATION
     Dosage: 500MG/ML
     Route: 048
  3. CARISOPRODOL [Suspect]
     Indication: DRUG USE FOR UNKNOWN INDICATION
  4. MEPROBAMATE [Suspect]
     Indication: DRUG USE FOR UNKNOWN INDICATION
  5. CETIRIZINE [Concomitant]
     Indication: DRUG USE FOR UNKNOWN INDICATION
  6. GABAPENTIN [Concomitant]
  7. MODAFINIL [Concomitant]
  8. ACETAMINOPHEN [Concomitant]

REACTIONS (1)
  - DRUG TOXICITY [None]
